FAERS Safety Report 8140594 (Version 4)
Quarter: 2012Q4

REPORT INFORMATION
  Report Type: 
  Country: US (occurrence: US)
  Receive Date: 20110916
  Receipt Date: 20120905
  Transmission Date: 20130627
  Serious: Yes (Hospitalization)
  Sender: FDA-Public Use
  Company Number: US-BAYER-2011-084552

PATIENT
  Age: 30 Year
  Sex: Female

DRUGS (10)
  1. YASMIN [Suspect]
     Indication: ORAL CONTRACEPTION
     Dosage: UNK
     Dates: end: 200301
  2. VENTOLIN [Concomitant]
  3. PROVENTIL [Concomitant]
  4. MINOCYCLINE [Concomitant]
     Indication: ACNE
     Dosage: UNK
     Dates: start: 2002
  5. CELEXA [Concomitant]
  6. CLARITIN [Concomitant]
  7. FOLIC ACID [Concomitant]
  8. VICODIN [Concomitant]
  9. CALCIUM [Concomitant]
     Dosage: UNK
     Dates: start: 20021107
  10. NABUMETONE [Concomitant]
     Dosage: UNK
     Dates: start: 20030118

REACTIONS (7)
  - Deep vein thrombosis [None]
  - Injury [None]
  - Pain [None]
  - General physical health deterioration [None]
  - Emotional distress [None]
  - Mental disorder [None]
  - Depression [None]
